FAERS Safety Report 8167609-3 (Version None)
Quarter: 2012Q1

REPORT INFORMATION
  Report Type: 
  Country: None (occurrence: None)
  Receive Date: 20120227
  Receipt Date: 20120217
  Transmission Date: 20120608
  Serious: Yes (Hospitalization, Congenital Anomaly, Other)
  Sender: FDA-Public Use
  Company Number: US-PFIZER INC-2011248650

PATIENT
  Sex: Female
  Weight: 3.57 kg

DRUGS (3)
  1. MULTI-VITAMINS [Concomitant]
     Dosage: UNK
     Route: 064
  2. ZOLOFT [Suspect]
     Indication: DEPRESSION
     Dosage: UNK
     Route: 064
     Dates: end: 20070101
  3. ZOLOFT [Suspect]
     Indication: GENERALISED ANXIETY DISORDER
     Dosage: 100 MG, UNK
     Route: 064

REACTIONS (17)
  - PATENT DUCTUS ARTERIOSUS [None]
  - CONGENITAL PULMONARY HYPERTENSION [None]
  - MITRAL VALVE INCOMPETENCE [None]
  - CARDIOMEGALY [None]
  - SEPSIS NEONATAL [None]
  - PULMONARY OEDEMA NEONATAL [None]
  - HYPERBILIRUBINAEMIA NEONATAL [None]
  - RIGHT VENTRICULAR HYPERTROPHY [None]
  - NEONATAL RESPIRATORY DISTRESS SYNDROME [None]
  - SHONE COMPLEX [None]
  - TRICUSPID VALVE INCOMPETENCE [None]
  - HYPOPLASTIC LEFT HEART SYNDROME [None]
  - AORTIC VALVE DISEASE [None]
  - DYSMORPHISM [None]
  - MATERNAL EXPOSURE TIMING UNSPECIFIED [None]
  - ATELECTASIS NEONATAL [None]
  - HEPATOMEGALY [None]
